FAERS Safety Report 8407256-9 (Version None)
Quarter: 2012Q2

REPORT INFORMATION
  Report Type: 
  Country: None (occurrence: None)
  Receive Date: 20120604
  Receipt Date: 20120521
  Transmission Date: 20120825
  Serious: Yes (Other)
  Sender: FDA-Public Use
  Company Number: US-ROCHE-1073382

PATIENT
  Age: 55 Year
  Sex: Female

DRUGS (1)
  1. ENFUVIRTIDE [Suspect]
     Indication: HIV INFECTION
     Route: 058

REACTIONS (1)
  - CUTANEOUS AMYLOIDOSIS [None]
